FAERS Safety Report 6346587-3 (Version None)
Quarter: 2009Q3

REPORT INFORMATION
  Report Type: 
  Country: None (occurrence: None)
  Receive Date: 20090827
  Receipt Date: 20090814
  Transmission Date: 20100115
  Serious: Yes (Hospitalization, Other)
  Sender: FDA-Public Use
  Company Number: 2009235345

PATIENT
  Age: 86 Year
  Sex: Male
  Weight: 70 kg

DRUGS (3)
  1. FRAGMIN [Suspect]
     Indication: DEEP VEIN THROMBOSIS
     Dosage: 18000 IU, 1X/DAY, SUBCUTANEOUS
     Route: 058
     Dates: start: 20090625, end: 20090627
  2. COUMADIN [Concomitant]
  3. LOVENOX [Concomitant]

REACTIONS (4)
  - ECCHYMOSIS [None]
  - INJECTION SITE NECROSIS [None]
  - INJECTION SITE VESICLES [None]
  - PNEUMONIA [None]
